FAERS Safety Report 10917768 (Version 1)
Quarter: 2015Q1

REPORT INFORMATION
  Report Type: Spontaneous
  Country: US (occurrence: US)
  Receive Date: 20150316
  Receipt Date: 20150316
  Transmission Date: 20150721
  Serious: No
  Sender: FDA-Public Use
  Company Number: US-GLAXOSMITHKLINE-US2014GSK053666

PATIENT
  Sex: Female

DRUGS (12)
  1. KETTLE NETI POT [Suspect]
     Active Substance: SODIUM BICARBONATE\SODIUM CHLORIDE
     Indication: NASAL DISCOMFORT
     Dosage: UNK
  2. KETTLE NETI POT [Suspect]
     Active Substance: SODIUM BICARBONATE\SODIUM CHLORIDE
     Indication: NASAL CONGESTION
  3. KETTLE NETI POT [Suspect]
     Active Substance: SODIUM BICARBONATE\SODIUM CHLORIDE
     Indication: EYE PRURITUS
  4. FLONASE [Suspect]
     Active Substance: FLUTICASONE PROPIONATE
     Indication: EYE IRRITATION
  5. KETTLE NETI POT [Suspect]
     Active Substance: SODIUM BICARBONATE\SODIUM CHLORIDE
     Indication: THROAT IRRITATION
  6. KETTLE NETI POT [Suspect]
     Active Substance: SODIUM BICARBONATE\SODIUM CHLORIDE
     Indication: HYPERSENSITIVITY
  7. FLONASE [Suspect]
     Active Substance: FLUTICASONE PROPIONATE
     Indication: NASAL CONGESTION
  8. KETTLE NETI POT [Suspect]
     Active Substance: SODIUM BICARBONATE\SODIUM CHLORIDE
     Indication: EYE IRRITATION
  9. FLONASE [Suspect]
     Active Substance: FLUTICASONE PROPIONATE
     Indication: NASAL DISCOMFORT
     Dosage: UNK
     Route: 045
  10. FLONASE [Suspect]
     Active Substance: FLUTICASONE PROPIONATE
     Indication: EYE PRURITUS
  11. FLONASE [Suspect]
     Active Substance: FLUTICASONE PROPIONATE
     Indication: HYPERSENSITIVITY
  12. FLONASE [Suspect]
     Active Substance: FLUTICASONE PROPIONATE
     Indication: THROAT IRRITATION

REACTIONS (1)
  - Drug ineffective [Unknown]
